FAERS Safety Report 23453032 (Version 1)
Quarter: 2024Q1

REPORT INFORMATION
  Report Type: Spontaneous
  Country: US (occurrence: US)
  Receive Date: 20240129
  Receipt Date: 20240129
  Transmission Date: 20240410
  Serious: No
  Sender: FDA-Public Use
  Company Number: US-MYLANLABS-2024M1006626

PATIENT
  Age: 74 Year
  Sex: Female
  Weight: 70.31 kg

DRUGS (2)
  1. TYRVAYA [Suspect]
     Active Substance: VARENICLINE TARTRATE
     Indication: Dry eye
     Dosage: UNK UNK, 2X (ONE SPRAY IN EACH NOSTRIL TWICE DAILY)
     Route: 045
     Dates: start: 20240116, end: 20240117
  2. GEMTESA [Concomitant]
     Active Substance: VIBEGRON
     Indication: Bladder disorder
     Dosage: UNK
     Route: 065

REACTIONS (4)
  - Urine output increased [Not Recovered/Not Resolved]
  - Tremor [Not Recovered/Not Resolved]
  - Sneezing [Not Recovered/Not Resolved]
  - Drug ineffective [Not Recovered/Not Resolved]

NARRATIVE: CASE EVENT DATE: 20240116
